FAERS Safety Report 6096316-6 (Version None)
Quarter: 2009Q1

REPORT INFORMATION
  Report Type: 
  Country: None (occurrence: None)
  Receive Date: 20090227
  Receipt Date: 20081111
  Transmission Date: 20090719
  Serious: No
  Sender: FDA-Public Use
  Company Number: A0755817A

PATIENT
  Age: 47 Year
  Sex: Female

DRUGS (2)
  1. LAMOTRIGINE [Suspect]
     Indication: ANXIETY
     Dosage: 75MG PER DAY
     Route: 048
     Dates: start: 20081016, end: 20081102
  2. SIMVASTATIN [Concomitant]

REACTIONS (2)
  - RASH [None]
  - RASH PRURITIC [None]
